FAERS Safety Report 5270847-0 (Version None)
Quarter: 2007Q1

REPORT INFORMATION
  Report Type: 
  Country: None (occurrence: None)
  Receive Date: 20070315
  Receipt Date: 20070228
  Transmission Date: 20070707
  Serious: Yes (Hospitalization)
  Sender: FDA-Public Use
  Company Number: S07-FRA-01134-01

PATIENT
  Age: 91 Year
  Sex: Female

DRUGS (6)
  1. EBIXA (MEMANTINE HYDROCHLORIDE) [Suspect]
     Dosage: 10 MG BID PO
     Route: 048
     Dates: start: 20060901
  2. MODOPAR (LEVODOPA, BENSERAZIDE) [Suspect]
     Dosage: 125 MG BID PO
     Route: 048
     Dates: start: 20031109
  3. MODOPAR SLOW RELEASE (LEVODOPA, BENSERAZIDE) [Suspect]
     Dosage: 125 MG QD PO
     Route: 048
     Dates: start: 20031109
  4. ZOLOFT [Suspect]
     Dosage: 1 QD PO
     Route: 048
     Dates: start: 20040615
  5. ARICEPT [Suspect]
     Dosage: 5 MG QD PO
     Route: 048
     Dates: start: 20060905
  6. LORAZEPAM [Suspect]
     Dosage: 2.5 MG QD PO
     Route: 048
     Dates: start: 20011018

REACTIONS (6)
  - BALANCE DISORDER [None]
  - DYSSTASIA [None]
  - FALL [None]
  - RIB FRACTURE [None]
  - SPONDYLOLISTHESIS [None]
  - VERTIGO [None]
